FAERS Safety Report 4269787-5 (Version None)
Quarter: 2004Q1

REPORT INFORMATION
  Report Type: 
  Country: None (occurrence: None)
  Receive Date: 20040113
  Receipt Date: 20031107
  Transmission Date: 20041129
  Serious: Yes (Other)
  Sender: FDA-Public Use
  Company Number: 2114

PATIENT
  Sex: Female

DRUGS (1)
  1. APAP, BUTALBITAL AND CAFFEINE TABLETS, 325/40/50 MG (MFR, WEST-WARD) [Suspect]
     Indication: MIGRAINE
     Dosage: 1 TABLET  PO
     Route: 048

REACTIONS (1)
  - BLOOD PRESSURE INCREASED [None]
